FAERS Safety Report 7079267-X (Version None)
Quarter: 2010Q4

REPORT INFORMATION
  Report Type: 
  Country: None (occurrence: None)
  Receive Date: 20101102
  Receipt Date: 20101025
  Transmission Date: 20110411
  Serious: Yes (Disabling)
  Sender: FDA-Public Use
  Company Number: AU-B.I. PHARMACEUTICALS,INC./RIDGEFIELD-2010-AU-00760AU

PATIENT

DRUGS (2)
  1. PRAMIPEXOLE DIHYDROCHLORIDE [Suspect]
  2. SINEMET [Concomitant]

REACTIONS (2)
  - PULMONARY FIBROSIS [None]
  - SKIN FIBROSIS [None]
